FAERS Safety Report 24690939 (Version 1)
Quarter: 2024Q4

REPORT INFORMATION
  Report Type: Spontaneous
  Country: US (occurrence: US)
  Receive Date: 20241203
  Receipt Date: 20241203
  Transmission Date: 20250114
  Serious: Yes (Hospitalization)
  Sender: PAREXEL
  Company Number: US-NOVEN PHARMACEUTICALS, INC.-2024-NOV-US000994

PATIENT
  Age: 46 Year
  Sex: Female
  Weight: 65.76 kg

DRUGS (3)
  1. ESTRADIOL [Suspect]
     Active Substance: ESTRADIOL
     Indication: Hot flush
     Dosage: UNKNOWN
     Route: 062
     Dates: start: 2023
  2. ESTRADIOL [Suspect]
     Active Substance: ESTRADIOL
     Indication: Night sweats
  3. ESTRADIOL [Suspect]
     Active Substance: ESTRADIOL
     Indication: Mood swings

REACTIONS (6)
  - Migraine [Recovered/Resolved]
  - Application site irritation [Unknown]
  - Product administration error [Not Recovered/Not Resolved]
  - Intentional dose omission [Recovered/Resolved]
  - Product quality issue [Not Recovered/Not Resolved]
  - Device issue [Not Recovered/Not Resolved]

NARRATIVE: CASE EVENT DATE: 20240701
